FAERS Safety Report 5835883-1 (Version None)
Quarter: 2008Q3

REPORT INFORMATION
  Report Type: 
  Country: None (occurrence: None)
  Receive Date: 20080806
  Receipt Date: 20080725
  Transmission Date: 20090109
  Serious: Yes (Other)
  Sender: FDA-Public Use
  Company Number: US-PFIZER INC-2008062499

PATIENT
  Sex: Female

DRUGS (1)
  1. PROVERA [Suspect]
     Route: 048

REACTIONS (8)
  - CHEST PAIN [None]
  - DIZZINESS [None]
  - EYE SWELLING [None]
  - INSOMNIA [None]
  - MALAISE [None]
  - MENORRHAGIA [None]
  - OCULAR HYPERAEMIA [None]
  - PAIN IN EXTREMITY [None]
